FAERS Safety Report 7304840-0 (Version None)
Quarter: 2011Q1

REPORT INFORMATION
  Report Type: 
  Country: None (occurrence: None)
  Receive Date: 20110222
  Receipt Date: 20110208
  Transmission Date: 20110831
  Serious: Yes (Hospitalization)
  Sender: FDA-Public Use
  Company Number: IE-ELI_LILLY_AND_COMPANY-IE201102002688

PATIENT
  Sex: Male

DRUGS (8)
  1. GAVISCON /00237601/ [Concomitant]
  2. LACTULOSE [Concomitant]
  3. ZOTON [Concomitant]
  4. MST [Concomitant]
  5. FORTEO [Suspect]
     Indication: OSTEOPOROSIS
     Dosage: 20 UG, UNK
     Dates: start: 20110114
  6. DONEPEZIL HCL [Concomitant]
  7. ANDROCUR [Concomitant]
  8. PARACETAMOL [Concomitant]

REACTIONS (1)
  - RECTAL HAEMORRHAGE [None]
